FAERS Safety Report 4509849-8 (Version None)
Quarter: 2004Q4

REPORT INFORMATION
  Report Type: 
  Country: None (occurrence: None)
  Receive Date: 20041119
  Receipt Date: 20041108
  Transmission Date: 20050328
  Serious: Yes (Hospitalization)
  Sender: FDA-Public Use
  Company Number: 2004RL000132

PATIENT
  Age: 83 Year
  Sex: Male

DRUGS (7)
  1. RYTHMOL SR [Suspect]
     Indication: ATRIAL FIBRILLATION
     Dosage: 325 MG;BID;PO
     Route: 048
     Dates: start: 20040914
  2. FOSINOPRIL SODIUM [Concomitant]
  3. ZOCOR [Concomitant]
  4. LAMISIL [Concomitant]
  5. LASIX [Concomitant]
  6. ASPIRIN [Concomitant]
  7. NITRGLYCERIN TRANSDERMAL SYSTEM [Concomitant]

REACTIONS (2)
  - CHEST PAIN [None]
  - DRUG LEVEL BELOW THERAPEUTIC [None]
